FAERS Safety Report 4772132-X (Version None)
Quarter: 2005Q3

REPORT INFORMATION
  Report Type: 
  Country: None (occurrence: None)
  Receive Date: 20050916
  Receipt Date: 20050907
  Transmission Date: 20060218
  Serious: Yes (Other)
  Sender: FDA-Public Use
  Company Number: GXKR2005DK01561

PATIENT
  Age: 72 Year
  Sex: Male

DRUGS (5)
  1. PENICILLIN G SODIUM [Suspect]
     Dosage: 5 MILLION INTERNATIONAL UNITS, TID
  2. ASPIRIN [Suspect]
     Dosage: 75 MG, QD
  3. GENTAMICIN [Suspect]
     Indication: ENDOCARDITIS
     Dosage: 60 MG, TID
  4. TINZAPARIN(TINZAPARIN) [Suspect]
     Indication: THROMBOSIS
  5. WARFARIN SODIUM [Suspect]
     Indication: THROMBOSIS

REACTIONS (4)
  - BLOOD CREATININE INCREASED [None]
  - BLOOD UREA INCREASED [None]
  - HAEMATURIA [None]
  - HAEMORRHAGIC DIATHESIS [None]
